FAERS Safety Report 7723924-6 (Version None)
Quarter: 2011Q3

REPORT INFORMATION
  Report Type: 
  Country: None (occurrence: None)
  Receive Date: 20110901
  Receipt Date: 20110818
  Transmission Date: 20111222
  Serious: Yes (Hospitalization)
  Sender: FDA-Public Use
  Company Number: US-ELI_LILLY_AND_COMPANY-US200907001861

PATIENT
  Sex: Female

DRUGS (9)
  1. FORTEO [Suspect]
     Indication: OSTEOPOROSIS
     Dosage: 20 UG, QD
     Route: 065
     Dates: start: 20090616
  2. LIPITOR [Concomitant]
     Dosage: 10 MG, UNKNOWN
  3. MULTI-VITAMIN [Concomitant]
  4. CALTRATE +D [Concomitant]
     Dosage: 600 MG, UNKNOWN
  5. BENAZEPRIL HYDROCHLORIDE [Concomitant]
     Dosage: 20 MG, UNKNOWN
  6. PLAVIX [Concomitant]
     Dosage: 75 MG, UNKNOWN
  7. METOPROLOL TARTRATE [Concomitant]
     Dosage: 100 MG, UNKNOWN
  8. FORTEO [Suspect]
     Dosage: 20 UG, QD
     Route: 065
     Dates: end: 20110301
  9. ANASTROZOLE [Concomitant]
     Dosage: 1 MG, UNKNOWN

REACTIONS (4)
  - HOSPITALISATION [None]
  - INJURY ASSOCIATED WITH DEVICE [None]
  - ANKLE FRACTURE [None]
  - TREMOR [None]
